FAERS Safety Report 23167759 (Version 5)
Quarter: 2023Q4

REPORT INFORMATION
  Report Type: Spontaneous
  Country: CA (occurrence: CA)
  Receive Date: 20231109
  Receipt Date: 20231213
  Transmission Date: 20240110
  Serious: Yes (Other)
  Sender: FDA-Public Use
  Company Number: CA-KARYOPHARM-2023KPT002107

PATIENT

DRUGS (5)
  1. XPOVIO [Suspect]
     Active Substance: SELINEXOR
     Indication: Plasma cell myeloma
     Dosage: 80 MG, WEEKLY FOR 5 WEEKS
     Route: 048
     Dates: start: 20231005, end: 202310
  2. XPOVIO [Suspect]
     Active Substance: SELINEXOR
     Dosage: 80 MG, WEEKLY, FOR 5 WEEKS
     Route: 048
     Dates: start: 202310, end: 202311
  3. XPOVIO [Suspect]
     Active Substance: SELINEXOR
     Dosage: 80 MG, WEEKLY, FOR 5 WEEKS
     Route: 048
     Dates: start: 2023, end: 20231207
  4. DEXAMETHASONE [Concomitant]
     Active Substance: DEXAMETHASONE
     Dosage: UNK
  5. BORTEZOMIB [Concomitant]
     Active Substance: BORTEZOMIB
     Dosage: UNK

REACTIONS (11)
  - Loss of consciousness [Unknown]
  - Insomnia [Unknown]
  - Arthralgia [Recovering/Resolving]
  - Pain [Unknown]
  - COVID-19 [Recovered/Resolved]
  - Fall [Unknown]
  - Scratch [Unknown]
  - Nasopharyngitis [Recovered/Resolved]
  - Night sweats [Unknown]
  - Fatigue [Unknown]
  - Therapy interrupted [Unknown]

NARRATIVE: CASE EVENT DATE: 20230101
